FAERS Safety Report 7971992-9 (Version None)
Quarter: 2011Q4

REPORT INFORMATION
  Report Type: 
  Country: None (occurrence: None)
  Receive Date: 20111212
  Receipt Date: 20111201
  Transmission Date: 20120403
  Serious: Yes (Hospitalization, Other)
  Sender: FDA-Public Use
  Company Number: US-ASTRAZENECA-2011SE49550

PATIENT
  Age: 72 Year
  Sex: Female

DRUGS (34)
  1. SEROQUEL [Suspect]
     Route: 048
  2. COLCRYS [Concomitant]
     Indication: ARTHRITIS
  3. LIMBREL [Concomitant]
     Indication: ARTHRITIS
     Route: 048
  4. LACTULOSE [Concomitant]
     Indication: LIVER DISORDER
  5. LOPID [Concomitant]
     Indication: HYPERCHOLESTEROLAEMIA
  6. VITAMIN E [Concomitant]
     Indication: CARDIAC DISORDER
  7. VITAMIN E [Concomitant]
     Indication: MEMORY IMPAIRMENT
  8. INSULIN [Concomitant]
  9. GABAPENTIN [Concomitant]
     Indication: NERVE INJURY
  10. LISINOPRIL [Concomitant]
     Indication: HYPERTENSION
  11. ASCORBIC ACID [Concomitant]
     Indication: NEUROPATHY PERIPHERAL
  12. FOLATE ACID [Concomitant]
     Indication: NEUROPATHY PERIPHERAL
  13. TRAMADOL HCL [Concomitant]
     Indication: PAIN
     Dosage: AS REQUIRED
  14. ASPIRIN [Concomitant]
     Indication: CARDIAC DISORDER
  15. DOXEPIN [Concomitant]
     Indication: ANTIDEPRESSANT THERAPY
  16. POTASSIUM CHLORIDE [Concomitant]
     Indication: HYPOKALAEMIA
  17. SEROQUEL [Suspect]
     Route: 048
  18. LEVOTHYROXINE SODIUM [Concomitant]
     Indication: THYROID DISORDER
  19. LOVAZA [Concomitant]
     Indication: HYPERTRIGLYCERIDAEMIA
  20. CLONAPINE [Concomitant]
     Indication: SLEEP DISORDER
  21. PRILOSEC [Concomitant]
     Indication: GASTROOESOPHAGEAL REFLUX DISEASE
  22. ALLEGRA [Concomitant]
     Indication: SEASONAL ALLERGY
     Dosage: TAKES EVERY 3 MONTHS OR WHEN HAS ALLERGIES
  23. VITAMIN D [Concomitant]
     Indication: NEUROPATHY PERIPHERAL
  24. LOVAZA [Concomitant]
     Indication: HYPERCHOLESTEROLAEMIA
  25. HUMULIN R [Concomitant]
     Indication: DIABETES MELLITUS
     Dosage: 70/30 25UNITS IN MORNING AND 15 UNITS AT NIGHT
  26. TART CHERRY [Concomitant]
     Indication: ARTHRALGIA
     Dosage: BID
  27. SEROQUEL [Suspect]
     Indication: NEUROTRANSMITTER LEVEL ALTERED
     Route: 048
     Dates: start: 20000101
  28. SEROQUEL [Suspect]
     Indication: INSOMNIA
     Route: 048
     Dates: start: 20000101
  29. SEROQUEL [Suspect]
     Route: 048
  30. ALLOPURINOL [Concomitant]
     Indication: ARTHRITIS
  31. COQ10 [Concomitant]
     Indication: CARDIAC DISORDER
  32. LISINOPRIL AND HYDROCHLOROTHIAZIDE [Concomitant]
  33. CLONAPINE [Concomitant]
     Indication: FEELING OF RELAXATION
  34. SEROQUEL [Suspect]
     Indication: BIPOLAR DISORDER
     Route: 048
     Dates: start: 20000101

REACTIONS (21)
  - THYROID DISORDER [None]
  - OFF LABEL USE [None]
  - DIABETES MELLITUS [None]
  - DRUG PRESCRIBING ERROR [None]
  - GOUT [None]
  - NEUROPATHY PERIPHERAL [None]
  - INSOMNIA [None]
  - ADVERSE DRUG REACTION [None]
  - BLOOD CHOLESTEROL INCREASED [None]
  - RENAL FAILURE CHRONIC [None]
  - NEOPLASM MALIGNANT [None]
  - OSTEOARTHRITIS [None]
  - ENDOMETRIAL CANCER [None]
  - CARDIAC MURMUR [None]
  - HEPATIC FAILURE [None]
  - MALAISE [None]
  - PSYCHOMOTOR HYPERACTIVITY [None]
  - WRONG TECHNIQUE IN DRUG USAGE PROCESS [None]
  - OVARIAN CANCER [None]
  - HYPERTENSION [None]
  - FATIGUE [None]
